FAERS Safety Report 7458320-2 (Version None)
Quarter: 2011Q2

REPORT INFORMATION
  Report Type: 
  Country: None (occurrence: None)
  Receive Date: 20110504
  Receipt Date: 20110502
  Transmission Date: 20111010
  Serious: Yes (Other)
  Sender: FDA-Public Use
  Company Number: US-ABBOTT-11P-163-0722893-00

PATIENT
  Sex: Male
  Weight: 46.762 kg

DRUGS (2)
  1. HUMIRA [Suspect]
     Indication: CROHN'S DISEASE
     Route: 058
     Dates: start: 20100701, end: 20101001
  2. HUMIRA [Suspect]
     Route: 058
     Dates: start: 20101001, end: 20101201

REACTIONS (5)
  - DRUG INEFFECTIVE [None]
  - WEIGHT DECREASED [None]
  - FISTULA [None]
  - INTESTINAL OBSTRUCTION [None]
  - ABSCESS [None]
